FAERS Safety Report 7491311-4 (Version None)
Quarter: 2011Q2

REPORT INFORMATION
  Report Type: 
  Country: None (occurrence: None)
  Receive Date: 20110519
  Receipt Date: 20110511
  Transmission Date: 20111010
  Serious: Yes (Other)
  Sender: FDA-Public Use
  Company Number: B0718866A

PATIENT
  Age: 85 Year
  Sex: Female

DRUGS (3)
  1. HERCEPTIN [Concomitant]
     Route: 042
  2. GEMZAR [Concomitant]
     Route: 042
  3. TYKERB [Suspect]
     Indication: BREAST CANCER
     Route: 048

REACTIONS (1)
  - MELAENA [None]
